FAERS Safety Report 9536079 (Version 1)
Quarter: 2013Q3

REPORT INFORMATION
  Report Type: Spontaneous
  Country: US (occurrence: None)
  Receive Date: 20130917
  Receipt Date: 20130917
  Transmission Date: 20140515
  Serious: Yes (Other)
  Sender: FDA-Public Use
  Company Number: None

PATIENT
  Age: 61 Year
  Sex: Male
  Weight: 113.4 kg

DRUGS (7)
  1. ZOLPIDEM [Suspect]
     Indication: INSOMNIA
     Route: 048
  2. ADVAIR [Concomitant]
  3. ALBUTEROL [Concomitant]
  4. ASTELIN [Concomitant]
  5. LIPPITOR [Concomitant]
  6. LOTREL [Concomitant]
  7. VITAMIN D3 [Concomitant]

REACTIONS (1)
  - Hand fracture [None]
